FAERS Safety Report 25148707 (Version 1)
Quarter: 2025Q2

REPORT INFORMATION
  Report Type: Spontaneous
  Country: ES (occurrence: ES)
  Receive Date: 20250402
  Receipt Date: 20250402
  Transmission Date: 20250717
  Serious: Yes (Other)
  Sender: UCB
  Company Number: ES-UCBSA-2025018573

PATIENT
  Age: 16 Year
  Sex: Male

DRUGS (6)
  1. BRIVARACETAM [Suspect]
     Active Substance: BRIVARACETAM
     Indication: Lennox-Gastaut syndrome
     Dosage: 100 MILLIGRAM, 2X/DAY (BID)
  2. BRIVARACETAM [Suspect]
     Active Substance: BRIVARACETAM
     Dosage: 75 MILLIGRAM, 2X/DAY (BID)
  3. VALPROIC ACID [Concomitant]
     Active Substance: VALPROIC ACID
     Indication: Product used for unknown indication
     Dosage: 400 MILLIGRAM, 3X/DAY (TID)
  4. PERAMPANEL [Concomitant]
     Active Substance: PERAMPANEL
     Indication: Product used for unknown indication
     Dosage: 12 MILLIGRAM, ONCE DAILY (QD)
  5. PERAMPANEL [Concomitant]
     Active Substance: PERAMPANEL
     Dosage: 8 MILLIGRAM, ONCE DAILY (QD)
  6. CLOBAZAM [Concomitant]
     Active Substance: CLOBAZAM
     Indication: Product used for unknown indication
     Dosage: 10 MILLIGRAM, 2X/DAY (BID)

REACTIONS (6)
  - Seizure [Recovering/Resolving]
  - Partial seizures [Recovering/Resolving]
  - Diarrhoea [Unknown]
  - Somnolence [Unknown]
  - Irritability [Recovering/Resolving]
  - Product use in unapproved indication [Unknown]
